FAERS Safety Report 19623066 (Version 1)
Quarter: 2021Q3

REPORT INFORMATION
  Report Type: Other
  Country: CA (occurrence: CA)
  Receive Date: 20210728
  Receipt Date: 20210728
  Transmission Date: 20211014
  Serious: Yes (Hospitalization)
  Sender: FDA-Public Use
  Company Number: CA-ROCHE-2629080

PATIENT
  Age: 84 Year
  Sex: Male
  Weight: 77 kg

DRUGS (9)
  1. ESBRIET [Suspect]
     Active Substance: PIRFENIDONE
     Dosage: PLAN TO REDUCE TO 2?2?3 OF 267MG TABLETS FOR DAILY TOTAL OF 1869MG ON 10?JUL?2020
     Route: 048
     Dates: start: 202006, end: 2020
  2. ESBRIET [Suspect]
     Active Substance: PIRFENIDONE
     Dosage: 2?2?3 OF 267 MG DAILY
     Route: 048
     Dates: start: 202007, end: 2020
  3. ESBRIET [Suspect]
     Active Substance: PIRFENIDONE
     Route: 048
     Dates: start: 202006, end: 202006
  4. ESBRIET [Suspect]
     Active Substance: PIRFENIDONE
     Dosage: 3?2?3 PER DAY
     Route: 048
     Dates: start: 20200804
  5. ESBRIET [Suspect]
     Active Substance: PIRFENIDONE
     Route: 048
     Dates: start: 202005, end: 202006
  6. ESBRIET [Suspect]
     Active Substance: PIRFENIDONE
     Route: 048
     Dates: start: 202006, end: 202006
  7. ESBRIET [Suspect]
     Active Substance: PIRFENIDONE
     Indication: IDIOPATHIC PULMONARY FIBROSIS
     Route: 048
     Dates: start: 20200502, end: 202005
  8. ESBRIET [Suspect]
     Active Substance: PIRFENIDONE
     Route: 048
     Dates: start: 202005, end: 202005
  9. OXYGEN. [Concomitant]
     Active Substance: OXYGEN

REACTIONS (10)
  - Abdominal discomfort [Recovering/Resolving]
  - Dyspepsia [Unknown]
  - Asthenia [Unknown]
  - Condition aggravated [Unknown]
  - Infection [Unknown]
  - Nausea [Unknown]
  - Dyspepsia [Not Recovered/Not Resolved]
  - Abdominal discomfort [Unknown]
  - Eating disorder [Recovering/Resolving]
  - Decreased appetite [Unknown]

NARRATIVE: CASE EVENT DATE: 202006
